FAERS Safety Report 15779729 (Version 2)
Quarter: 2019Q1

REPORT INFORMATION
  Report Type: Spontaneous
  Country: IN (occurrence: IN)
  Receive Date: 20190101
  Receipt Date: 20190123
  Transmission Date: 20190417
  Serious: Yes (Hospitalization, Other)
  Sender: FDA-Public Use
  Company Number: IN-UCBSA-2018056847

PATIENT
  Age: 40 Year
  Sex: Female
  Weight: 56 kg

DRUGS (5)
  1. PHENYTOIN. [Concomitant]
     Active Substance: PHENYTOIN
     Indication: PARTIAL SEIZURES
  2. LACOSAMIDE. [Concomitant]
     Active Substance: LACOSAMIDE
     Indication: PARTIAL SEIZURES
  3. SODIUM VALPROATE [Concomitant]
     Active Substance: VALPROATE SODIUM
     Indication: PARTIAL SEIZURES
  4. BRIVIACT [Suspect]
     Active Substance: BRIVARACETAM
     Indication: PARTIAL SEIZURES
     Dosage: 75 MG, 2X/DAY (BID)
     Route: 048
     Dates: start: 20181208, end: 20181217
  5. PHENOBARBITONE [Concomitant]
     Active Substance: PHENOBARBITAL
     Indication: PARTIAL SEIZURES

REACTIONS (1)
  - Stevens-Johnson syndrome [Recovered/Resolved]

NARRATIVE: CASE EVENT DATE: 20181217
